FAERS Safety Report 20415437 (Version 2)
Quarter: 2022Q1

REPORT INFORMATION
  Report Type: Report from Study
  Country: US (occurrence: US)
  Receive Date: 20220202
  Receipt Date: 20220321
  Transmission Date: 20220423
  Serious: No
  Sender: FDA-Public Use
  Company Number: US-NOVARTISTESTPH-NVSC2022US021860

PATIENT
  Sex: Female

DRUGS (1)
  1. ENTRESTO [Suspect]
     Active Substance: SACUBITRIL\VALSARTAN
     Indication: Product used for unknown indication
     Dosage: 1 DOSAGE FORM, BID (24/26MG)
     Route: 048

REACTIONS (8)
  - Dyspnoea [Unknown]
  - Visual impairment [Unknown]
  - Fall [Unknown]
  - Hand fracture [Unknown]
  - Emotional disorder [Unknown]
  - Anxiety [Unknown]
  - Feeling abnormal [Unknown]
  - Dizziness [Unknown]
